FAERS Safety Report 7449828-4 (Version None)
Quarter: 2011Q2

REPORT INFORMATION
  Report Type: 
  Country: None (occurrence: None)
  Receive Date: 20110502
  Receipt Date: 20110419
  Transmission Date: 20111010
  Serious: Yes (Hospitalization)
  Sender: FDA-Public Use
  Company Number: US-JNJFOC-20110409520

PATIENT
  Age: 50 Year
  Sex: Male

DRUGS (4)
  1. FENTANYL-100 [Suspect]
     Indication: PAIN
     Route: 062
  2. DURAGESIC [Suspect]
     Indication: PRODUCT USED FOR UNKNOWN INDICATION
     Route: 062
  3. FENTANYL-100 [Suspect]
     Route: 062
  4. MORPHINE [Concomitant]
     Indication: BREAKTHROUGH PAIN
     Route: 065

REACTIONS (7)
  - SKIN SWELLING [None]
  - DRUG ADMINISTRATION ERROR [None]
  - HOSPITALISATION [None]
  - TACHYCARDIA [None]
  - ERYTHEMA [None]
  - MALAISE [None]
  - PRURITUS [None]
